FAERS Safety Report 5958105-X (Version None)
Quarter: 2008Q4

REPORT INFORMATION
  Report Type: 
  Country: None (occurrence: None)
  Receive Date: 20081119
  Receipt Date: 20081118
  Transmission Date: 20090506
  Serious: Yes (Other)
  Sender: FDA-Public Use
  Company Number: D0058665A

PATIENT
  Age: 70 Year
  Sex: Male

DRUGS (9)
  1. ARIXTRA [Suspect]
     Dosage: 7.5MG PER DAY
     Route: 065
     Dates: start: 20080907
  2. ORGARAN [Concomitant]
     Route: 065
     Dates: end: 20080907
  3. FUROSEMID [Concomitant]
     Route: 065
  4. OMEPRAZOLE [Concomitant]
     Route: 065
  5. DELIX PLUS [Concomitant]
     Route: 065
  6. CIPRALEX [Concomitant]
     Route: 065
  7. ALLOPURINOL [Concomitant]
     Route: 065
  8. INSULIN [Concomitant]
     Route: 065
  9. METODURA RETARD [Concomitant]
     Route: 065

REACTIONS (2)
  - CHROMATURIA [None]
  - POST PROCEDURAL HAEMORRHAGE [None]
